FAERS Safety Report 21254481 (Version 1)
Quarter: 2022Q3

REPORT INFORMATION
  Report Type: Spontaneous
  Country: US (occurrence: None)
  Receive Date: 20220824
  Receipt Date: 20220824
  Transmission Date: 20221026
  Serious: Yes (Death)
  Sender: FDA-Public Use
  Company Number: None

PATIENT
  Age: 92 Year
  Sex: Female

DRUGS (2)
  1. VELTASSA [Suspect]
     Active Substance: PATIROMER
     Dosage: FREQUENCY : DAILY;?
     Route: 048
     Dates: start: 202112, end: 20220809
  2. PROCRIT [Suspect]
     Active Substance: ERYTHROPOIETIN

REACTIONS (1)
  - Death [None]

NARRATIVE: CASE EVENT DATE: 20220809
